FAERS Safety Report 5494512-X (Version None)
Quarter: 2007Q4

REPORT INFORMATION
  Report Type: 
  Country: None (occurrence: None)
  Receive Date: 20071024
  Receipt Date: 20071011
  Transmission Date: 20080405
  Serious: Yes (Other)
  Sender: FDA-Public Use
  Company Number: BR-JNJFOC-20071003256

PATIENT
  Age: 49 Year
  Sex: Female
  Weight: 91 kg

DRUGS (4)
  1. TOPAMAX [Suspect]
     Indication: PANIC DISORDER
     Route: 048
  2. TOPAMAX [Suspect]
     Indication: DEPRESSION
     Route: 048
  3. RIVOTRIL [Concomitant]
     Indication: PANIC DISORDER
  4. RIVOTRIL [Concomitant]
     Indication: DEPRESSION

REACTIONS (2)
  - DEPRESSION [None]
  - PANIC DISORDER [None]
